FAERS Safety Report 7001513-9 (Version None)
Quarter: 2010Q3

REPORT INFORMATION
  Report Type: 
  Country: None (occurrence: None)
  Receive Date: 20100920
  Receipt Date: 20100909
  Transmission Date: 20110219
  Serious: Yes (Hospitalization)
  Sender: FDA-Public Use
  Company Number: US-ROCHE-727733

PATIENT
  Sex: Male

DRUGS (1)
  1. ROFERON-A [Suspect]
     Dosage: OTHER INDICATION:HEPATITIS C
     Route: 042
     Dates: start: 20090601, end: 20090901

REACTIONS (1)
  - RENAL DISORDER [None]
